FAERS Safety Report 9512969 (Version 1)
Quarter: 2013Q3

REPORT INFORMATION
  Report Type: Spontaneous
  Country: GB (occurrence: GB)
  Receive Date: 20130910
  Receipt Date: 20130910
  Transmission Date: 20140515
  Serious: Yes (Other)
  Sender: FDA-Public Use
  Company Number: GB-TEVA-430994ISR

PATIENT
  Age: 23 Year
  Sex: Female

DRUGS (1)
  1. CLOMIPRAMINE [Suspect]
     Dosage: 10 MILLIGRAM DAILY; DURING PREGNANCY

REACTIONS (2)
  - Cataplexy [Unknown]
  - Live birth [Unknown]
